FAERS Safety Report 5703199-X (Version None)
Quarter: 2008Q2

REPORT INFORMATION
  Report Type: 
  Country: None (occurrence: None)
  Receive Date: 20080411
  Receipt Date: 20080404
  Transmission Date: 20081010
  Serious: Yes (Hospitalization, Other)
  Sender: FDA-Public Use
  Company Number: US-PFIZER INC-2008006352

PATIENT
  Sex: Male
  Weight: 101.6 kg

DRUGS (6)
  1. ZOLOFT [Suspect]
     Indication: POST-TRAUMATIC STRESS DISORDER
     Route: 048
  2. AMLODIPINE BESYLATE [Concomitant]
     Dosage: DAILY DOSE:5MG
  3. BUSPIRONE HCL [Concomitant]
     Route: 048
  4. HYDROCHLOROTHIAZIDE [Concomitant]
     Dosage: DAILY DOSE:25MG
  5. TRAZODONE HCL [Concomitant]
  6. IBUPROFEN [Concomitant]

REACTIONS (5)
  - ALCOHOL ABUSE [None]
  - DEPRESSION [None]
  - DRUG ABUSE [None]
  - DRUG SCREEN FALSE POSITIVE [None]
  - SUICIDAL IDEATION [None]
